FAERS Safety Report 9495521 (Version 1)
Quarter: 2013Q3

REPORT INFORMATION
  Report Type: Spontaneous
  Country: US (occurrence: US)
  Receive Date: 20130903
  Receipt Date: 20130903
  Transmission Date: 20140515
  Serious: No
  Sender: FDA-Public Use
  Company Number: US-SANOFI-AVENTIS-2013SA050666

PATIENT
  Age: 8 Year
  Sex: Female
  Weight: 60 kg

DRUGS (2)
  1. ALLEGRA [Suspect]
     Indication: HYPERSENSITIVITY
     Route: 065
     Dates: start: 20130515, end: 20130515
  2. ALLEGRA [Suspect]
     Indication: HYPERSENSITIVITY
     Route: 048

REACTIONS (3)
  - Abdominal pain [Recovered/Resolved]
  - Product taste abnormal [Unknown]
  - Nausea [Recovered/Resolved]
